FAERS Safety Report 8514007-6 (Version None)
Quarter: 2012Q3

REPORT INFORMATION
  Report Type: 
  Country: None (occurrence: None)
  Receive Date: 20120717
  Receipt Date: 20120705
  Transmission Date: 20120928
  Serious: No
  Sender: FDA-Public Use
  Company Number: US-009507513-1207USA002134

PATIENT

DRUGS (3)
  1. CLARITIN [Concomitant]
     Dosage: UNK
  2. FLONASE [Concomitant]
     Dosage: UNK
  3. NUVARING [Suspect]
     Indication: CONTRACEPTION
     Dosage: UNK, QM
     Route: 067

REACTIONS (1)
  - METRORRHAGIA [None]
